FAERS Safety Report 25215920 (Version 1)
Quarter: 2025Q2

REPORT INFORMATION
  Report Type: Report from Study
  Country: US (occurrence: US)
  Receive Date: 20250418
  Receipt Date: 20250418
  Transmission Date: 20250716
  Serious: No
  Sender: ACADIA PHARMACEUTICALS
  Company Number: US-ACADIA PHARMACEUTICALS INC.-ACA-2025-PIM-004352

PATIENT
  Sex: Male

DRUGS (14)
  1. NUPLAZID [Suspect]
     Active Substance: PIMAVANSERIN TARTRATE
     Indication: Parkinson^s disease
     Dosage: 34 MILLIGRAM, QD
     Route: 048
     Dates: start: 20201229
  2. ACETAMINOPHEN [Concomitant]
     Active Substance: ACETAMINOPHEN
  3. ALPRAZOLAM [Concomitant]
     Active Substance: ALPRAZOLAM
  4. ATIVAN [Concomitant]
     Active Substance: LORAZEPAM
  5. AZILECT [Concomitant]
     Active Substance: RASAGILINE MESYLATE
  6. CARBIDOPA\LEVODOPA [Concomitant]
     Active Substance: CARBIDOPA\LEVODOPA
  7. CREXONT [Concomitant]
     Active Substance: CARBIDOPA\LEVODOPA
  8. DUOPA [Concomitant]
     Active Substance: CARBIDOPA\LEVODOPA
  9. FLUDROCORTISONE [Concomitant]
     Active Substance: FLUDROCORTISONE
  10. LORAZEPAM [Concomitant]
     Active Substance: LORAZEPAM
  11. RASAGILINE [Concomitant]
     Active Substance: RASAGILINE
  12. SERTRALINE [Concomitant]
     Active Substance: SERTRALINE HYDROCHLORIDE
  13. ERGOCALCIFEROL [Concomitant]
     Active Substance: ERGOCALCIFEROL
  14. ZOLOFT [Concomitant]
     Active Substance: SERTRALINE HYDROCHLORIDE

REACTIONS (2)
  - Somnolence [Unknown]
  - Product dose omission issue [Unknown]
